FAERS Safety Report 10206789 (Version 3)
Quarter: 2014Q2

REPORT INFORMATION
  Report Type: Spontaneous
  Country: CR (occurrence: CR)
  Receive Date: 20140530
  Receipt Date: 20140530
  Transmission Date: 20141212
  Serious: Yes (Hospitalization)
  Sender: FDA-Public Use
  Company Number: CR-PFIZER INC-2014136021

PATIENT
  Age: 70 Year
  Sex: Female

DRUGS (2)
  1. PRISTIQ [Suspect]
     Indication: DEPRESSION
     Dosage: 50 MG, UNK
     Route: 048
     Dates: start: 201403, end: 2014
  2. NORVASC [Suspect]
     Dosage: 10 MG, UNK

REACTIONS (4)
  - Hyponatraemia [Recovered/Resolved]
  - Confusional state [Unknown]
  - Angiopathy [Unknown]
  - Drug withdrawal syndrome [Unknown]
